FAERS Safety Report 8299151-3 (Version None)
Quarter: 2012Q2

REPORT INFORMATION
  Report Type: 
  Country: None (occurrence: None)
  Receive Date: 20120416
  Receipt Date: 20120416
  Transmission Date: 20120825
  Serious: No
  Sender: FDA-Public Use
  Company Number: None

PATIENT
  Age: 58 Year
  Sex: Male

DRUGS (2)
  1. SINGULAIR [Suspect]
     Dates: start: 20081201, end: 20081225
  2. LISINOPRIL [Concomitant]

REACTIONS (18)
  - HEPATIC FUNCTION ABNORMAL [None]
  - HYPOXIA [None]
  - INTERNATIONAL NORMALISED RATIO INCREASED [None]
  - HEPATOTOXICITY [None]
  - MULTI-ORGAN FAILURE [None]
  - CHILLS [None]
  - DYSPNOEA [None]
  - RASH [None]
  - NAUSEA [None]
  - LIVER DISORDER [None]
  - FATIGUE [None]
  - PALPABLE PURPURA [None]
  - LUNG INFILTRATION [None]
  - FEELING ABNORMAL [None]
  - PYREXIA [None]
  - RENAL IMPAIRMENT [None]
  - EOSINOPHILIA [None]
  - LEUKOCYTOCLASTIC VASCULITIS [None]
